FAERS Safety Report 5043259-2 (Version None)
Quarter: 2006Q2

REPORT INFORMATION
  Report Type: 
  Country: None (occurrence: None)
  Receive Date: 20060629
  Receipt Date: 20060621
  Transmission Date: 20061013
  Serious: Yes (Hospitalization)
  Sender: FDA-Public Use
  Company Number: GXKR2006JP03440

PATIENT
  Age: 40 Year
  Sex: Female

DRUGS (4)
  1. RIFAMPICIN [Suspect]
     Indication: LYMPHADENITIS
  2. ISONIAZID [Suspect]
     Indication: LYMPHADENITIS
  3. ETHAMBUTOL (NGX) (ETHAMBUTOL) UNKNOWN [Suspect]
     Indication: LYMPHADENITIS
  4. PYRAZINAMIDE [Suspect]
     Indication: LYMPHADENITIS

REACTIONS (6)
  - CARDIAC TAMPONADE [None]
  - DRUG HYPERSENSITIVITY [None]
  - LYMPHADENOPATHY [None]
  - PERICARDIAL EFFUSION [None]
  - PLEURAL EFFUSION [None]
  - PYREXIA [None]
